FAERS Safety Report 7516980-1 (Version None)
Quarter: 2011Q2

REPORT INFORMATION
  Report Type: 
  Country: None (occurrence: None)
  Receive Date: 20110502
  Receipt Date: 20110217
  Transmission Date: 20111010
  Serious: Yes (Other)
  Sender: FDA-Public Use
  Company Number: AMAG201100050

PATIENT
  Age: 78 Year
  Sex: Male

DRUGS (6)
  1. EPOGEN [Suspect]
     Dosage: 16500 UT, INTRAVENOUS
     Route: 042
     Dates: start: 20100510
  2. HEPARIN [Suspect]
     Dosage: 2500 UT, INTRAVENOUS
     Route: 042
     Dates: start: 20100510
  3. FERAHEME [Suspect]
     Indication: IRON DEFICIENCY ANAEMIA
     Dosage: 510 MG, SINGLE, INTRAVENOUS
     Route: 042
     Dates: start: 20100510, end: 20100510
  4. CLONIDINE [Concomitant]
  5. LABETALOL HCL [Concomitant]
  6. HECTOROL [Suspect]
     Dosage: 6 UG, INTRAVENOUS
     Route: 042
     Dates: start: 20100510

REACTIONS (4)
  - HYPERSENSITIVITY [None]
  - HYPOTENSION [None]
  - UNRESPONSIVE TO STIMULI [None]
  - HYPERTENSION [None]
